FAERS Safety Report 7991875-8 (Version None)
Quarter: 2011Q4

REPORT INFORMATION
  Report Type: 
  Country: None (occurrence: None)
  Receive Date: 20111219
  Receipt Date: 20111210
  Transmission Date: 20120403
  Serious: Yes (Hospitalization, Other)
  Sender: FDA-Public Use
  Company Number: US-ABBOTT-11P-163-0883482-00

PATIENT
  Age: 45 Year
  Sex: Female

DRUGS (1)
  1. HUMIRA [Suspect]
     Indication: PSORIASIS
     Dates: start: 20070101, end: 20090801

REACTIONS (7)
  - BLINDNESS [None]
  - ACCIDENT AT WORK [None]
  - RASH MACULAR [None]
  - CATARACT [None]
  - INFECTION [None]
  - DIVERTICULITIS [None]
  - SKIN LESION [None]
